FAERS Safety Report 25228386 (Version 1)
Quarter: 2025Q2

REPORT INFORMATION
  Report Type: Spontaneous
  Country: US (occurrence: US)
  Receive Date: 20250423
  Receipt Date: 20250423
  Transmission Date: 20250716
  Serious: No
  Sender: SANOFI AVENTIS
  Company Number: US-SA-2025SA115321

PATIENT
  Sex: Male

DRUGS (9)
  1. DUPIXENT [Suspect]
     Active Substance: DUPILUMAB
     Indication: Neurodermatitis
     Dosage: 300 MG, QOW
     Route: 058
  2. AMBRISENTAN [Concomitant]
     Active Substance: AMBRISENTAN
  3. GUAIFENESIN [Concomitant]
     Active Substance: GUAIFENESIN
  4. POTASSIUM CHLORIDE [Concomitant]
     Active Substance: POTASSIUM CHLORIDE
  5. SPIRONOLACTONE [Concomitant]
     Active Substance: SPIRONOLACTONE
  6. TADALAFIL [Concomitant]
     Active Substance: TADALAFIL
  7. TORSEMIDE [Concomitant]
     Active Substance: TORSEMIDE
  8. ALLOPURINOL [Concomitant]
     Active Substance: ALLOPURINOL
  9. EPLERENONE [Concomitant]
     Active Substance: EPLERENONE

REACTIONS (3)
  - Depressed mood [Not Recovered/Not Resolved]
  - Fluid retention [Not Recovered/Not Resolved]
  - Swelling face [Not Recovered/Not Resolved]
